FAERS Safety Report 8003428-6 (Version None)
Quarter: 2011Q4

REPORT INFORMATION
  Report Type: 
  Country: None (occurrence: None)
  Receive Date: 20111222
  Receipt Date: 20111214
  Transmission Date: 20120403
  Serious: Yes (Other)
  Sender: FDA-Public Use
  Company Number: US-SANOFI-AVENTIS-2011SA078262

PATIENT
  Age: 63 Year
  Sex: Male
  Weight: 108.86 kg

DRUGS (5)
  1. LANTUS [Suspect]
     Dosage: 40 UNITS HS AND 50 UNITS IN AM
     Route: 058
  2. HUMALOG [Concomitant]
     Dosage: DOSE:30 UNIT(S)
  3. OPTICLICK [Suspect]
     Indication: TYPE 1 DIABETES MELLITUS
  4. LANTUS [Suspect]
     Indication: TYPE 1 DIABETES MELLITUS
     Route: 058
     Dates: start: 20010101
  5. LANTUS [Suspect]
     Dosage: 32 U IN AM AND 40 U IN PM
     Route: 058

REACTIONS (1)
  - BLINDNESS [None]
